FAERS Safety Report 5141067-5 (Version None)
Quarter: 2006Q4

REPORT INFORMATION
  Report Type: 
  Country: None (occurrence: None)
  Receive Date: 20061026
  Receipt Date: 20061016
  Transmission Date: 20070319
  Serious: Yes (Life-Threatening, Hospitalization)
  Sender: FDA-Public Use
  Company Number: 2006094178

PATIENT
  Age: 82 Year
  Sex: Female
  Weight: 75 kg

DRUGS (3)
  1. CABERGOLINE [Suspect]
     Indication: PARKINSON'S DISEASE
     Dosage: 0.5 MG (1 IN 1 D) ORAL
     Route: 048
     Dates: start: 20060621
  2. CITALOPRAM HYDROBROMIDE [Concomitant]
  3. CIPROFLOXACIN HCL [Concomitant]

REACTIONS (10)
  - ACUTE ABDOMEN [None]
  - COLITIS ISCHAEMIC [None]
  - COLITIS ULCERATIVE [None]
  - DISEASE RECURRENCE [None]
  - DYSPHAGIA [None]
  - GASTROINTESTINAL NECROSIS [None]
  - GENERAL PHYSICAL HEALTH DETERIORATION [None]
  - PNEUMONIA [None]
  - SHOCK [None]
  - STAPHYLOCOCCAL SEPSIS [None]
